FAERS Safety Report 7361047-9 (Version None)
Quarter: 2011Q1

REPORT INFORMATION
  Report Type: 
  Country: None (occurrence: None)
  Receive Date: 20110318
  Receipt Date: 20110308
  Transmission Date: 20110831
  Serious: Yes (Other)
  Sender: FDA-Public Use
  Company Number: CHPA2011US03769

PATIENT
  Sex: Female
  Weight: 59.864 kg

DRUGS (7)
  1. CELLCEPT [Concomitant]
  2. ZOLOFT [Concomitant]
  3. LIPITOR [Concomitant]
  4. PROGRAF [Concomitant]
  5. HABITROL [Suspect]
     Dosage: 21 MG, QD
     Route: 062
  6. DRUG THERAPY NOS [Suspect]
     Dosage: UNK, UNK
     Dates: start: 20110214
  7. HABITROL [Suspect]
     Indication: SMOKING CESSATION THERAPY
     Dosage: 14 MG, QD
     Route: 062

REACTIONS (5)
  - TREATMENT NONCOMPLIANCE [None]
  - RENAL FAILURE [None]
  - OVERDOSE [None]
  - CONDITION AGGRAVATED [None]
  - BLOOD CREATININE INCREASED [None]
